FAERS Safety Report 5872360-6 (Version None)
Quarter: 2008Q3

REPORT INFORMATION
  Report Type: 
  Country: None (occurrence: None)
  Receive Date: 20080905
  Receipt Date: 20080828
  Transmission Date: 20090109
  Serious: Yes (Other)
  Sender: FDA-Public Use
  Company Number: CA-ASTRAZENECA-2008UW17693

PATIENT
  Sex: Female

DRUGS (7)
  1. CRESTOR [Suspect]
     Indication: BLOOD CHOLESTEROL INCREASED
     Route: 048
     Dates: start: 20080818, end: 20080827
  2. OXYCONTIN [Concomitant]
     Indication: OSTEOARTHRITIS
     Route: 048
  3. TOPAMAX [Concomitant]
     Indication: MIGRAINE
     Route: 048
  4. CITALOPRAM HYDROBROMIDE [Concomitant]
     Indication: PAIN
     Route: 048
  5. COZAAR [Concomitant]
     Indication: PROTEINURIA
     Route: 048
  6. METFORMIN HCL [Concomitant]
     Indication: TYPE 2 DIABETES MELLITUS
     Route: 048
  7. SENOKOT [Concomitant]
     Indication: CONSTIPATION
     Route: 048

REACTIONS (4)
  - DYSPNOEA [None]
  - OEDEMA PERIPHERAL [None]
  - WEIGHT INCREASED [None]
  - WHEEZING [None]
